FAERS Safety Report 24979014 (Version 1)
Quarter: 2025Q1

REPORT INFORMATION
  Report Type: Spontaneous
  Country: CA (occurrence: CA)
  Receive Date: 20250218
  Receipt Date: 20250218
  Transmission Date: 20250409
  Serious: Yes (Hospitalization)
  Sender: ROCHE
  Company Number: CA-002147023-NVSC2025CA023699

PATIENT
  Age: 52 Year
  Sex: Female

DRUGS (24)
  1. XOLAIR [Suspect]
     Active Substance: OMALIZUMAB
     Indication: Chronic spontaneous urticaria
     Route: 050
  2. XOLAIR [Suspect]
     Active Substance: OMALIZUMAB
     Route: 050
  3. XOLAIR [Suspect]
     Active Substance: OMALIZUMAB
     Route: 050
  4. XOLAIR [Suspect]
     Active Substance: OMALIZUMAB
     Route: 050
  5. XOLAIR [Suspect]
     Active Substance: OMALIZUMAB
     Route: 050
  6. XOLAIR [Suspect]
     Active Substance: OMALIZUMAB
     Route: 050
  7. XOLAIR [Suspect]
     Active Substance: OMALIZUMAB
     Route: 050
  8. XOLAIR [Suspect]
     Active Substance: OMALIZUMAB
     Route: 050
  9. XOLAIR [Suspect]
     Active Substance: OMALIZUMAB
     Route: 050
  10. XOLAIR [Suspect]
     Active Substance: OMALIZUMAB
     Route: 050
  11. XOLAIR [Suspect]
     Active Substance: OMALIZUMAB
     Route: 050
  12. XOLAIR [Suspect]
     Active Substance: OMALIZUMAB
     Route: 050
  13. XOLAIR [Suspect]
     Active Substance: OMALIZUMAB
     Route: 050
  14. XOLAIR [Suspect]
     Active Substance: OMALIZUMAB
     Route: 050
  15. XOLAIR [Suspect]
     Active Substance: OMALIZUMAB
     Route: 050
  16. XOLAIR [Suspect]
     Active Substance: OMALIZUMAB
     Route: 050
  17. ACETAMINOPHEN [Concomitant]
     Active Substance: ACETAMINOPHEN
     Indication: Product used for unknown indication
     Route: 065
  18. AMLODIPINE BESYLATE [Concomitant]
     Active Substance: AMLODIPINE BESYLATE
     Indication: Product used for unknown indication
     Route: 065
  19. CELEBREX [Concomitant]
     Active Substance: CELECOXIB
     Indication: Product used for unknown indication
     Route: 065
  20. CETIRIZINE HYDROCHLORIDE [Concomitant]
     Active Substance: CETIRIZINE HYDROCHLORIDE
     Indication: Chronic spontaneous urticaria
     Dosage: UNK, QD
     Route: 065
  21. PANTOPRAZOLE SODIUM [Concomitant]
     Active Substance: PANTOPRAZOLE SODIUM
     Indication: Product used for unknown indication
     Route: 065
  22. PREDNISONE [Concomitant]
     Active Substance: PREDNISONE
     Indication: Product used for unknown indication
     Route: 065
  23. TACROLIMUS [Concomitant]
     Active Substance: TACROLIMUS
     Indication: Product used for unknown indication
     Route: 065
  24. ZANTAC [Concomitant]
     Active Substance: RANITIDINE HYDROCHLORIDE
     Indication: Chronic spontaneous urticaria
     Route: 065

REACTIONS (26)
  - Urticaria [Not Recovered/Not Resolved]
  - Cystic fibrosis [Not Recovered/Not Resolved]
  - Body temperature decreased [Not Recovered/Not Resolved]
  - Cough [Not Recovered/Not Resolved]
  - Diarrhoea [Not Recovered/Not Resolved]
  - Glucose tolerance impaired [Not Recovered/Not Resolved]
  - Haemoptysis [Not Recovered/Not Resolved]
  - Headache [Not Recovered/Not Resolved]
  - Heart rate increased [Not Recovered/Not Resolved]
  - Inappropriate schedule of product administration [Unknown]
  - Injection site pain [Not Recovered/Not Resolved]
  - Insomnia [Not Recovered/Not Resolved]
  - Malaise [Not Recovered/Not Resolved]
  - Middle insomnia [Not Recovered/Not Resolved]
  - Nasopharyngitis [Not Recovered/Not Resolved]
  - Oropharyngeal pain [Not Recovered/Not Resolved]
  - Pneumonia [Not Recovered/Not Resolved]
  - Photosensitivity reaction [Not Recovered/Not Resolved]
  - Pneumonia [Not Recovered/Not Resolved]
  - Product dose omission issue [Unknown]
  - Pruritus [Not Recovered/Not Resolved]
  - Pulmonary fibrosis [Not Recovered/Not Resolved]
  - Pyrexia [Not Recovered/Not Resolved]
  - Rash pruritic [Not Recovered/Not Resolved]
  - Rhinorrhoea [Not Recovered/Not Resolved]
  - Scratch [Not Recovered/Not Resolved]
